FAERS Safety Report 7824305-7 (Version None)
Quarter: 2011Q4

REPORT INFORMATION
  Report Type: 
  Country: None (occurrence: None)
  Receive Date: 20111019
  Receipt Date: 20111011
  Transmission Date: 20120403
  Serious: Yes (Life-Threatening, Hospitalization, Disabling)
  Sender: FDA-Public Use
  Company Number: US-CELGENEUS-163-21880-11091582

PATIENT
  Sex: Female

DRUGS (3)
  1. REVLIMID [Suspect]
     Indication: MULTIPLE MYELOMA
     Dosage: 25 MILLIGRAM
     Route: 048
     Dates: start: 20110523
  2. REVLIMID [Suspect]
     Dosage: 15 MILLIGRAM
     Route: 048
     Dates: start: 20110801, end: 20110828
  3. DEXAMETHASONE [Concomitant]
     Indication: MULTIPLE MYELOMA
     Dosage: 40 MILLIGRAM
     Route: 048
     Dates: start: 20110523, end: 20110828

REACTIONS (1)
  - DIVERTICULAR PERFORATION [None]
